FAERS Safety Report 7154302-9 (Version None)
Quarter: 2010Q4

REPORT INFORMATION
  Report Type: 
  Country: None (occurrence: None)
  Receive Date: 20101213
  Receipt Date: 20101130
  Transmission Date: 20110411
  Serious: Yes (Hospitalization)
  Sender: FDA-Public Use
  Company Number: US-WATSON-2010-15736

PATIENT
  Age: 30 Year
  Sex: Female

DRUGS (2)
  1. CARISOPRODOL (WATSON LABORATORIES) [Suspect]
     Indication: INTENTIONAL OVERDOSE
     Dosage: 21000 MG, SINGLE (60 TABLETS)
     Route: 048
  2. PHENOBARBITAL [Suspect]
     Indication: PRODUCT USED FOR UNKNOWN INDICATION
     Dosage: UNK

REACTIONS (6)
  - EYE MOVEMENT DISORDER [None]
  - GAZE PALSY [None]
  - GRAND MAL CONVULSION [None]
  - INTENTIONAL OVERDOSE [None]
  - OCULOCEPHALOGYRIC REFLEX ABSENT [None]
  - PUPILLARY LIGHT REFLEX TESTS ABNORMAL [None]
